FAERS Safety Report 17253995 (Version 2)
Quarter: 2020Q1

REPORT INFORMATION
  Report Type: Spontaneous
  Country: SE (occurrence: SE)
  Receive Date: 20200109
  Receipt Date: 20200212
  Transmission Date: 20200409
  Serious: Yes (Other)
  Sender: FDA-Public Use
  Company Number: SE-MYLANLABS-2020M1002611

PATIENT
  Age: 50 Year
  Sex: Female
  Weight: 72 kg

DRUGS (2)
  1. ESCITALOPRAM [Suspect]
     Active Substance: ESCITALOPRAM OXALATE
     Indication: FATIGUE
     Dosage: 10, 15 SAMT 20 MG
     Route: 065
     Dates: start: 201905
  2. ESCITALOPRAM [Suspect]
     Active Substance: ESCITALOPRAM OXALATE
     Indication: ANXIETY
     Dosage: UNK
     Route: 065

REACTIONS (4)
  - Sleep disorder [Not Recovered/Not Resolved]
  - Headache [Not Recovered/Not Resolved]
  - Urinary retention [Not Recovered/Not Resolved]
  - Dyschezia [Not Recovered/Not Resolved]

NARRATIVE: CASE EVENT DATE: 201905
